FAERS Safety Report 20914847 (Version 3)
Quarter: 2022Q2

REPORT INFORMATION
  Report Type: Spontaneous
  Country: US (occurrence: US)
  Receive Date: 20220604
  Receipt Date: 20220616
  Transmission Date: 20220721
  Serious: No
  Sender: FDA-Public Use
  Company Number: US-SA-SAC20220523001690

PATIENT
  Sex: Female

DRUGS (1)
  1. APIDRA [Suspect]
     Active Substance: INSULIN GLULISINE
     Dosage: UNK
     Route: 065
     Dates: start: 20220521

REACTIONS (2)
  - Injection site mass [Not Recovered/Not Resolved]
  - Product contamination [Not Recovered/Not Resolved]

NARRATIVE: CASE EVENT DATE: 20220522
